FAERS Safety Report 7636879-X (Version None)
Quarter: 2011Q3

REPORT INFORMATION
  Report Type: 
  Country: None (occurrence: None)
  Receive Date: 20110726
  Receipt Date: 20110721
  Transmission Date: 20111222
  Serious: Yes (Other)
  Sender: FDA-Public Use
  Company Number: US-BAYER-2011-036800

PATIENT
  Age: 54 Year
  Sex: Female

DRUGS (7)
  1. VALIUM [Concomitant]
  2. PERCOCET [Concomitant]
  3. FENTANYL [Concomitant]
  4. CALCIUM ACETATE [Concomitant]
  5. MULTI-VITAMIN [Concomitant]
  6. CIPROFLOXACIN HCL [Suspect]
     Indication: OROPHARYNGEAL PAIN
     Dosage: UNK
     Route: 048
     Dates: start: 20100101
  7. ZOLOFT [Concomitant]

REACTIONS (6)
  - DYSPNOEA EXERTIONAL [None]
  - HYPERSENSITIVITY [None]
  - ASTHMA [None]
  - PHARYNGEAL OEDEMA [None]
  - THROAT TIGHTNESS [None]
  - DYSPNOEA [None]
